FAERS Safety Report 4613352-4 (Version None)
Quarter: 2005Q1

REPORT INFORMATION
  Report Type: 
  Country: None (occurrence: None)
  Receive Date: 20050316
  Receipt Date: 20050304
  Transmission Date: 20050727
  Serious: Yes (Hospitalization)
  Sender: FDA-Public Use
  Company Number: 2005043166

PATIENT
  Age: 75 Year
  Sex: Male

DRUGS (1)
  1. SORTIS (ATORVASTATIN) [Suspect]
     Indication: HYPERLIPIDAEMIA
     Dosage: 20 MG, ORAL
     Route: 048

REACTIONS (10)
  - ANAEMIA [None]
  - ASTHENIA [None]
  - BLOOD CREATINE PHOSPHOKINASE INCREASED [None]
  - DIALYSIS [None]
  - HYPERKALAEMIA [None]
  - MYOGLOBIN BLOOD INCREASED [None]
  - NAUSEA [None]
  - PYELONEPHRITIS CHRONIC [None]
  - RENAL DISORDER [None]
  - VOMITING [None]
